FAERS Safety Report 22357847 (Version 7)
Quarter: 2025Q4

REPORT INFORMATION
  Report Type: Spontaneous
  Country: EU (occurrence: EU)
  Receive Date: 20230524
  Receipt Date: 20251212
  Transmission Date: 20260117
  Serious: Yes (Hospitalization, Other)
  Sender: AUROBINDO
  Company Number: EU-BRISTOL-MYERS SQUIBB COMPANY-2023-066803

PATIENT
  Age: 70 Year
  Sex: Male

DRUGS (18)
  1. PEMETREXED [Suspect]
     Active Substance: PEMETREXED
     Indication: Non-small cell lung cancer
     Dosage: 445 MILLIGRAM (EVERY 2 WEEK)
     Dates: start: 20230413, end: 20230510
  2. CARBOPLATIN [Suspect]
     Active Substance: CARBOPLATIN
     Indication: Non-small cell lung cancer
     Dosage: 445 MILLIGRAM EVERY 2 WEEK
     Dates: start: 20230413, end: 20230510
  3. OPDIVO [Suspect]
     Active Substance: NIVOLUMAB
     Indication: Non-small cell lung cancer
     Dosage: 360 MILLIGRAM EVERY 2 WEEK
     Dates: start: 20230413, end: 20230517
  4. OPDIVO [Suspect]
     Active Substance: NIVOLUMAB
     Dosage: 360 MILLIGRAM EVERY 2 WEEK
     Dates: start: 20230413, end: 20230628
  5. YERVOY [Suspect]
     Active Substance: IPILIMUMAB
     Indication: Non-small cell lung cancer
     Dosage: 75 MILLIGRAM EVERY 2 WEEK
  6. YERVOY [Suspect]
     Active Substance: IPILIMUMAB
     Dosage: 92 MILLIGRAM, 2 WEEK
     Dates: start: 20230413, end: 20230517
  7. YERVOY [Suspect]
     Active Substance: IPILIMUMAB
     Dosage: 92 MILLIGRAM, 2 WEEK
     Dates: start: 20230413, end: 20230601
  8. TAPENTADOL [Concomitant]
     Active Substance: TAPENTADOL
     Indication: Adverse event
     Dosage: UNK
     Route: 065
  9. CANDESARTAN [Concomitant]
     Active Substance: CANDESARTAN
     Indication: Product used for unknown indication
     Dosage: UNK
     Route: 065
  10. BUDESONIDE [Concomitant]
     Active Substance: BUDESONIDE
     Indication: Product used for unknown indication
     Dosage: UNK
     Route: 065
  11. PIPERACILLIN SODIUM\TAZOBACTAM SODIUM [Concomitant]
     Active Substance: PIPERACILLIN SODIUM\TAZOBACTAM SODIUM
     Indication: Adverse event
     Dosage: UNK
     Route: 065
  12. HYDROCORTISONE [Concomitant]
     Active Substance: HYDROCORTISONE
     Indication: Adverse event
     Dosage: UNK
     Route: 065
  13. KALINOR [Concomitant]
     Indication: Product used for unknown indication
     Dosage: UNK
     Route: 065
  14. PANTOPRAZOLE SODIUM [Concomitant]
     Active Substance: PANTOPRAZOLE SODIUM
     Indication: Product used for unknown indication
     Dosage: UNK
     Route: 065
  15. RISPERDAL [Concomitant]
     Active Substance: RISPERIDONE
     Indication: Adverse event
     Dosage: UNK
     Route: 065
  16. SPIRONOLACTONE [Concomitant]
     Active Substance: SPIRONOLACTONE
     Indication: Adverse event
     Dosage: UNK
     Route: 065
  17. PIPERACILLIN [Concomitant]
     Active Substance: PIPERACILLIN
     Indication: Product used for unknown indication
     Dosage: UNK
     Route: 065
     Dates: start: 20230619, end: 20230625
  18. TAZOBACTAM [Concomitant]
     Active Substance: TAZOBACTAM
     Indication: Adverse event
     Dosage: UNK
     Route: 065
     Dates: start: 20230619, end: 20230625

REACTIONS (9)
  - Autoimmune hepatitis [Unknown]
  - Acute kidney injury [Not Recovered/Not Resolved]
  - Lymphocytic hypophysitis [Recovered/Resolved]
  - Hypophysitis [Not Recovered/Not Resolved]
  - Delusion [Unknown]
  - Fatigue [Unknown]
  - Hypotension [Unknown]
  - Inflammatory marker increased [Unknown]
  - Off label use [Unknown]

NARRATIVE: CASE EVENT DATE: 20230429
